FAERS Safety Report 9680061 (Version 2)
Quarter: 2013Q4

REPORT INFORMATION
  Report Type: Report from Study
  Country: DE (occurrence: DE)
  Receive Date: 20131110
  Receipt Date: 20131110
  Transmission Date: 20140711
  Serious: Yes (Life-Threatening)
  Sender: FDA-Public Use
  Company Number: DE-ROCHE-1291332

PATIENT
  Sex: Male

DRUGS (22)
  1. RITUXIMAB [Suspect]
     Indication: B-CELL LYMPHOMA
     Route: 042
     Dates: end: 20131004
  2. PEGFILGRASTIM [Suspect]
     Indication: B-CELL LYMPHOMA
     Dosage: 6MG
     Route: 058
     Dates: start: 20131008, end: 20131008
  3. CYCLOPHOSPHAMIDE [Suspect]
     Indication: B-CELL LYMPHOMA
     Dosage: 1620MG
     Route: 042
     Dates: end: 20131005
  4. DOXORUBICIN [Suspect]
     Indication: B-CELL LYMPHOMA
     Dosage: 108MG
     Route: 042
     Dates: end: 20131005
  5. VINCRISTINE [Suspect]
     Indication: B-CELL LYMPHOMA
     Dosage: 4.36MG
     Route: 042
     Dates: start: 20130905, end: 20130905
  6. PREDNISONE [Suspect]
     Indication: B-CELL LYMPHOMA
     Dosage: 100MG
     Route: 065
     Dates: start: 20131005, end: 20131009
  7. PREDNISONE [Suspect]
     Dosage: WEANING SCHEDULE: 50MG 1/1 DAY FOR 1 DAY, 25MG 1/1 DAY FOR 1 DAY, 12.5MG 1/1 DAY FOR 1 DAY
     Route: 065
     Dates: start: 20131010, end: 20131012
  8. ENALAPRIL MALEATE [Concomitant]
     Indication: BLOOD PRESSURE
     Route: 048
     Dates: start: 20131015
  9. METFORMIN [Concomitant]
     Indication: DIABETES MELLITUS
     Route: 048
  10. LEVOTHYROXINE [Concomitant]
     Indication: THYROIDECTOMY
     Route: 048
  11. ALLOPURINOL [Concomitant]
     Indication: HYPERURICAEMIA
     Route: 048
  12. GRANISETRON [Concomitant]
     Indication: VOMITING
     Route: 048
     Dates: start: 20131005, end: 20131005
  13. ALIZAPRIDE [Concomitant]
     Indication: VOMITING
     Dosage: 24 HOURS FOR 2 DAYS
     Route: 042
     Dates: start: 20131005, end: 20131006
  14. MESNA [Concomitant]
     Indication: PROPHYLAXIS
     Route: 042
     Dates: start: 20131005, end: 20131005
  15. DIMETINDENE MALEATE [Concomitant]
     Route: 042
     Dates: start: 20131005, end: 20131005
  16. RANITIDIN [Concomitant]
     Route: 042
     Dates: start: 20131005, end: 20131005
  17. CHLORTALIDON [Concomitant]
     Indication: HYPERTENSION
     Route: 048
  18. SULFAMETHOXAZOLE/TRIMETHOPRIM [Concomitant]
     Dosage: 160 MG 2 TIMES A DAY ON MONDAY AND 8000 MG 2 TIMES A DAY ON THURSDAY.
     Route: 048
  19. ACICLOVIR [Concomitant]
     Route: 048
  20. PANTOPRAZOL NATRIUM [Concomitant]
     Indication: DYSPEPSIA
     Route: 048
  21. AMPHOTERICIN B [Concomitant]
     Route: 048
  22. LORAZEPAM [Concomitant]
     Indication: SLEEP DISORDER
     Route: 048
     Dates: start: 20131005, end: 20131005

REACTIONS (1)
  - Pulmonary embolism [Unknown]
